FAERS Safety Report 21182484 (Version 1)
Quarter: 2022Q3

REPORT INFORMATION
  Report Type: Spontaneous
  Country: CA (occurrence: CA)
  Receive Date: 20220808
  Receipt Date: 20220808
  Transmission Date: 20221027
  Serious: Yes (Other)
  Sender: FDA-Public Use
  Company Number: CA-SUN PHARMACEUTICAL INDUSTRIES LTD-2022R1-347645

PATIENT
  Age: 60 Year
  Sex: Female

DRUGS (6)
  1. AFATINIB [Suspect]
     Active Substance: AFATINIB
     Indication: Glioblastoma
     Dosage: 30 MILLIGRAM, QD
     Route: 065
     Dates: start: 201209
  2. AFATINIB [Suspect]
     Active Substance: AFATINIB
     Dosage: 30 MILLIGRAM,QD
     Route: 065
     Dates: start: 201210
  3. AFATINIB [Suspect]
     Active Substance: AFATINIB
     Dosage: 40 MILLIGRAM, QD
     Route: 065
     Dates: start: 201305
  4. TEMOZOLOMIDE [Suspect]
     Active Substance: TEMOZOLOMIDE
     Indication: Glioblastoma
     Dosage: 75 MILLIGRAM/SQ. METER, QD
     Route: 065
     Dates: start: 201103, end: 201111
  5. TEMOZOLOMIDE [Suspect]
     Active Substance: TEMOZOLOMIDE
     Dosage: 150 MILLIGRAM/SQ. METER
     Route: 065
  6. TEMOZOLOMIDE [Suspect]
     Active Substance: TEMOZOLOMIDE
     Dosage: 200 MILLIGRAM/SQ. METER
     Route: 065

REACTIONS (4)
  - Disease progression [Unknown]
  - Skin toxicity [Unknown]
  - Gastrointestinal toxicity [Unknown]
  - Infection [Not Recovered/Not Resolved]
